FAERS Safety Report 5715019-8 (Version None)
Quarter: 2008Q2

REPORT INFORMATION
  Report Type: 
  Country: None (occurrence: None)
  Receive Date: 20080423
  Receipt Date: 20080415
  Transmission Date: 20081010
  Serious: Yes (Other)
  Sender: FDA-Public Use
  Company Number: PHFR2007GB02688

PATIENT
  Age: 35 Year
  Sex: Male

DRUGS (1)
  1. CLOZARIL [Suspect]
     Indication: SCHIZOPHRENIA
     Dosage: 175MG DAILY
     Route: 048
     Dates: start: 20030903

REACTIONS (3)
  - GAIT DISTURBANCE [None]
  - HEMIPARESIS [None]
  - SPEECH DISORDER [None]
